FAERS Safety Report 8116017-X (Version None)
Quarter: 2011Q4

REPORT INFORMATION
  Report Type: 
  Country: None (occurrence: None)
  Receive Date: 20111227
  Receipt Date: 20110929
  Transmission Date: 20120403
  Serious: Yes (Other)
  Sender: FDA-Public Use
  Company Number: PHHY2011US64764

PATIENT
  Age: 56 Year
  Sex: Female

DRUGS (12)
  1. ASPIRIN [Concomitant]
  2. PIROXICAM [Concomitant]
  3. CELEXA [Concomitant]
  4. AMITRIPTYLINE HCL [Concomitant]
  5. VITAMINS NOS (VITAMINS NOS) [Concomitant]
  6. VITAMIN TAB [Concomitant]
  7. CALCIUM CARBONATE [Concomitant]
  8. GILENYA [Suspect]
     Indication: MULTIPLE SCLEROSIS
     Dosage: 0.5 MG, QD, ORAL
     Route: 048
     Dates: start: 20110715
  9. SIMVASTATIN [Concomitant]
  10. NEURONTIN [Concomitant]
  11. FEMHRT [Concomitant]
  12. BACLOFEN [Concomitant]

REACTIONS (6)
  - TREMOR [None]
  - HEART RATE DECREASED [None]
  - SALIVARY HYPERSECRETION [None]
  - FATIGUE [None]
  - SWOLLEN TONGUE [None]
  - VISION BLURRED [None]
